FAERS Safety Report 18522729 (Version 1)
Quarter: 2020Q4

REPORT INFORMATION
  Report Type: Spontaneous
  Country: NL (occurrence: NL)
  Receive Date: 20201119
  Receipt Date: 20201119
  Transmission Date: 20210114
  Serious: Yes (Other)
  Sender: FDA-Public Use
  Company Number: NL-MYLANLABS-2020M1095339

PATIENT
  Sex: Female
  Weight: 54 kg

DRUGS (2)
  1. ESTRADIOL MYLAN [Suspect]
     Active Substance: ESTRADIOL
     Indication: PRODUCT USED FOR UNKNOWN INDICATION
     Dosage: 100 MILLIGRAM
     Dates: start: 2020
  2. FLUOXETINE DISPER MYLAN 20 MG, DISPERGEERBARE TABLETTEN [Suspect]
     Active Substance: FLUOXETINE HYDROCHLORIDE
     Indication: DEPRESSION
     Dosage: 50 MILLIGRAM
     Route: 048
     Dates: start: 202007

REACTIONS (5)
  - Depression [Unknown]
  - Migraine [Unknown]
  - Weight increased [Unknown]
  - Suicidal ideation [Unknown]
  - Therapeutic response unexpected [Unknown]
